FAERS Safety Report 15768420 (Version 2)
Quarter: 2019Q1

REPORT INFORMATION
  Report Type: Spontaneous
  Country: US (occurrence: US)
  Receive Date: 20181227
  Receipt Date: 20190325
  Transmission Date: 20190417
  Serious: Yes (Other)
  Sender: FDA-Public Use
  Company Number: US-JNJFOC-20181218171

PATIENT
  Age: 50 Year
  Sex: Female

DRUGS (3)
  1. XARELTO [Suspect]
     Active Substance: RIVAROXABAN
     Indication: THROMBOSIS
     Dosage: 20 MG (30 TABLETS) AND 15 MG (45 TABLETS).
     Route: 048
     Dates: start: 20160707, end: 20161220
  2. XARELTO [Suspect]
     Active Substance: RIVAROXABAN
     Indication: THROMBOSIS PROPHYLAXIS
     Dosage: 20 MG (30 TABLETS) AND 15 MG (45 TABLETS).
     Route: 048
     Dates: start: 20160707, end: 20161220
  3. XARELTO [Suspect]
     Active Substance: RIVAROXABAN
     Indication: THROMBOSIS PROPHYLAXIS
     Dosage: 20 MG (30 TABLETS) AND 15 MG (45 TABLETS).
     Route: 048
     Dates: start: 20160707, end: 20161220

REACTIONS (2)
  - Uterine haemorrhage [Unknown]
  - Haemorrhage [Unknown]

NARRATIVE: CASE EVENT DATE: 201612
